FAERS Safety Report 10646914 (Version 1)
Quarter: 2014Q4

REPORT INFORMATION
  Report Type: Spontaneous
  Country: FR (occurrence: FR)
  Receive Date: 20141211
  Receipt Date: 20141211
  Transmission Date: 20150529
  Serious: Yes (Hospitalization)
  Sender: FDA-Public Use
  Company Number: FR-BAYER-2014-177907

PATIENT
  Age: 30 Year
  Sex: Female
  Weight: 58 kg

DRUGS (5)
  1. CIFLOX [Suspect]
     Active Substance: CIPROFLOXACIN
     Indication: TONSILLITIS
     Dosage: UNK
     Dates: start: 20140930, end: 20141008
  2. RULID [Suspect]
     Active Substance: ROXITHROMYCIN
     Indication: TONSILLITIS
     Dosage: UNK
     Dates: start: 20140923, end: 20140930
  3. SOLUPRED [PREDNISOLONE] [Concomitant]
     Active Substance: PREDNISOLONE
     Dosage: 48 MG, ONCE
     Dates: start: 20141018, end: 20141018
  4. IBUPROFENE [Suspect]
     Active Substance: IBUPROFEN
     Dosage: UNK
     Dates: start: 20141017
  5. BACTRIM [Suspect]
     Active Substance: SULFAMETHOXAZOLE\TRIMETHOPRIM
     Indication: PHARYNGITIS STREPTOCOCCAL
     Dosage: UNK
     Dates: start: 20141010, end: 20141017

REACTIONS (5)
  - Dermatitis exfoliative [Recovering/Resolving]
  - Ocular hyperaemia [Recovering/Resolving]
  - Eosinophilia [Unknown]
  - Rash maculo-papular [Recovering/Resolving]
  - Face oedema [Recovering/Resolving]

NARRATIVE: CASE EVENT DATE: 20141018
